FAERS Safety Report 14003033 (Version 1)
Quarter: 2017Q3

REPORT INFORMATION
  Report Type: Report from Study
  Country: ES (occurrence: ES)
  Receive Date: 20170922
  Receipt Date: 20170922
  Transmission Date: 20171128
  Serious: Yes (Death, Other)
  Sender: FDA-Public Use
  Company Number: ES-ROCHE-1994013

PATIENT

DRUGS (6)
  1. DASABUVIR [Suspect]
     Active Substance: DASABUVIR
     Indication: HEPATITIS C
     Route: 065
  2. LEDIPASVIR/SOFOSBUVIR [Suspect]
     Active Substance: LEDIPASVIR\SOFOSBUVIR
     Indication: HEPATITIS C
     Route: 065
  3. SOFOSBUVIR [Suspect]
     Active Substance: SOFOSBUVIR
     Indication: HEPATITIS C
     Route: 065
  4. RIBAVIRIN. [Suspect]
     Active Substance: RIBAVIRIN
     Indication: HEPATITIS C
     Route: 065
  5. OMBITASVIR/PARITAPREVIR/RITONAVIR [Suspect]
     Active Substance: OMBITASVIR\PARITAPREVIR\RITONAVIR
     Indication: HEPATITIS C
     Route: 065
  6. DACLATASVIR. [Suspect]
     Active Substance: DACLATASVIR
     Indication: HEPATITIS C
     Route: 065

REACTIONS (31)
  - Headache [Unknown]
  - Dyspnoea [Unknown]
  - Alanine aminotransferase increased [Unknown]
  - Hepatitis acute [Unknown]
  - Nausea [Unknown]
  - Erythrodermic psoriasis [Unknown]
  - Decreased appetite [Unknown]
  - Drug-induced liver injury [Unknown]
  - Pruritus [Unknown]
  - Diarrhoea [Unknown]
  - Renal failure [Unknown]
  - Extrasystoles [Unknown]
  - Malaise [Unknown]
  - Pain [Unknown]
  - Rhabdomyolysis [Fatal]
  - Gastrointestinal haemorrhage [Unknown]
  - Fatigue [Unknown]
  - Insomnia [Unknown]
  - Myalgia [Unknown]
  - Muscular weakness [Unknown]
  - Hepatic cirrhosis [Fatal]
  - Cerebral haematoma [Fatal]
  - Dry skin [Unknown]
  - Confusional state [Unknown]
  - Libido decreased [Unknown]
  - Irritability [Unknown]
  - Anaemia [Unknown]
  - Hyperbilirubinaemia [Unknown]
  - Encephalopathy [Unknown]
  - Vomiting [Unknown]
  - Sudden death [Fatal]
